FAERS Safety Report 8443872-6 (Version None)
Quarter: 2012Q2

REPORT INFORMATION
  Report Type: 
  Country: None (occurrence: None)
  Receive Date: 20120323
  Receipt Date: 20111130
  Transmission Date: 20120825
  Serious: Yes (Other)
  Sender: FDA-Public Use
  Company Number: 163-21880-11060132

PATIENT
  Age: 66 Year
  Sex: Male
  Weight: 86.9092 kg

DRUGS (14)
  1. KLOR-CON M10 (POTASSIUM CHLORIDE) (TABLETS) [Concomitant]
  2. SIMVASTATIN [Concomitant]
  3. ZOMETA [Concomitant]
  4. GABAPENTIN [Concomitant]
  5. MULTIVITAMIN [Concomitant]
  6. ACYCLOVIR [Concomitant]
  7. REVLIMID [Suspect]
     Indication: MULTIPLE MYELOMA
     Dosage: SEE IMAGE
     Route: 048
     Dates: start: 20100401
  8. REVLIMID [Suspect]
     Indication: MULTIPLE MYELOMA
     Dosage: SEE IMAGE
     Route: 048
     Dates: start: 20110601
  9. REVLIMID [Suspect]
     Indication: MULTIPLE MYELOMA
     Dosage: SEE IMAGE
     Route: 048
     Dates: start: 20100201
  10. REVLIMID [Suspect]
     Indication: MULTIPLE MYELOMA
     Dosage: SEE IMAGE
     Route: 048
     Dates: start: 20110125
  11. REVLIMID [Suspect]
     Indication: MULTIPLE MYELOMA
     Dosage: SEE IMAGE
     Route: 048
     Dates: start: 20110920
  12. DEXAMETHASONE [Concomitant]
  13. ZOLEDRONIC ACID [Concomitant]
  14. FUROSEMIDE [Concomitant]

REACTIONS (2)
  - NEUTROPENIA [None]
  - PLATELET COUNT DECREASED [None]
